FAERS Safety Report 11274505 (Version 1)
Quarter: 2015Q3

REPORT INFORMATION
  Report Type: Spontaneous
  Country: CH (occurrence: PT)
  Receive Date: 20150715
  Receipt Date: 20150715
  Transmission Date: 20151125
  Serious: Yes (Other)
  Sender: FDA-Public Use
  Company Number: CH-LPDUSPRD-20150541

PATIENT
  Age: 40 Year
  Sex: Female

DRUGS (5)
  1. VENOFER [Suspect]
     Active Substance: IRON SUCROSE
     Dosage: 400 MG, 2 IN 1 WEEK
     Route: 042
     Dates: start: 20150617, end: 20150617
  2. RANTUDIL 90 RETARD [Concomitant]
     Dosage: 90 MG
     Route: 065
  3. PAROXETINE [Concomitant]
     Active Substance: PAROXETINE\PAROXETINE HYDROCHLORIDE
     Dosage: DOSE NOT PROVIDED
     Route: 048
  4. COVERAM [Concomitant]
     Active Substance: AMLODIPINE\PERINDOPRIL
     Dosage: 5 MG + 5 MG
     Route: 048
  5. OMEPRAZOLE. [Concomitant]
     Active Substance: OMEPRAZOLE
     Dosage: DOSE NOT PROVIDED
     Route: 048

REACTIONS (4)
  - Cyanosis [Unknown]
  - Syncope [Unknown]
  - Overdose [Unknown]
  - Nausea [Unknown]

NARRATIVE: CASE EVENT DATE: 20150617
